FAERS Safety Report 8003199-3 (Version None)
Quarter: 2011Q4

REPORT INFORMATION
  Report Type: 
  Country: None (occurrence: None)
  Receive Date: 20111220
  Receipt Date: 20111208
  Transmission Date: 20120403
  Serious: Yes (Life-Threatening)
  Sender: FDA-Public Use
  Company Number: TUK2011A00194

PATIENT
  Age: 70 Year
  Sex: Male

DRUGS (5)
  1. METFORMIN HCL [Concomitant]
  2. RAMIPRIL [Concomitant]
  3. TAMSULOSIN HCL [Concomitant]
  4. PIOGLITAZONE [Suspect]
     Dosage: 15 MG (15 MG, 1 IN 1 D)
     Route: 048
     Dates: start: 20110301, end: 20110801
  5. SIMVASTATIN [Concomitant]

REACTIONS (1)
  - BLADDER TRANSITIONAL CELL CARCINOMA RECURRENT [None]
